FAERS Safety Report 24686724 (Version 2)
Quarter: 2024Q4

REPORT INFORMATION
  Report Type: Report from Study
  Country: BR (occurrence: BR)
  Receive Date: 20241202
  Receipt Date: 20241209
  Transmission Date: 20250115
  Serious: Yes (Other)
  Sender: UCB
  Company Number: BR-UCBSA-2024062807

PATIENT
  Age: 78 Year
  Sex: Female
  Weight: 56 kg

DRUGS (2)
  1. BIMEKIZUMAB [Suspect]
     Active Substance: BIMEKIZUMAB
     Indication: Psoriasis
     Dosage: 320 MILLIGRAM, EV 4 WEEKS
     Route: 058
     Dates: start: 20240809
  2. ROMY [Concomitant]
     Indication: Blood pressure abnormal
     Dosage: UNK

REACTIONS (4)
  - Anaemia [Recovered/Resolved]
  - Nasopharyngitis [Recovered/Resolved]
  - Mineral deficiency [Unknown]
  - Paraesthesia [Unknown]

NARRATIVE: CASE EVENT DATE: 20240801
